FAERS Safety Report 5757002-2 (Version None)
Quarter: 2008Q2

REPORT INFORMATION
  Report Type: 
  Country: None (occurrence: None)
  Receive Date: 20080529
  Receipt Date: 20080521
  Transmission Date: 20081010
  Serious: Yes (Other)
  Sender: FDA-Public Use
  Company Number: CHPA2008US08629

PATIENT
  Age: 24 Year
  Sex: Female

DRUGS (2)
  1. EXCEDRIN EXTRA STRENGTH (NCH)(CAFFEINE CITRATE, ACETYLSALICYLIC ACID, [Suspect]
     Indication: HEADACHE
     Dosage: 2 DF, QD, ORAL
     Route: 048
     Dates: start: 20080520
  2. LEXAPRO [Suspect]
     Dosage: 1 DF, QD
     Dates: start: 20080520

REACTIONS (1)
  - VAGINAL HAEMORRHAGE [None]
